FAERS Safety Report 21437779 (Version 1)
Quarter: 2022Q4

REPORT INFORMATION
  Report Type: Spontaneous
  Country: CN (occurrence: CN)
  Receive Date: 20221011
  Receipt Date: 20221011
  Transmission Date: 20230113
  Serious: Yes (Hospitalization, Other)
  Sender: FDA-Public Use
  Company Number: CN-AstraZeneca-2022A334395

PATIENT

DRUGS (5)
  1. GOSERELIN [Suspect]
     Active Substance: GOSERELIN
     Indication: Breast cancer
     Dosage: 3.6 MILLIGRAM, QD (ONCE EVERY ONE DAY)
     Route: 058
     Dates: start: 20220825, end: 20220825
  2. GOSERELIN [Suspect]
     Active Substance: GOSERELIN
     Indication: Chemotherapy
     Dosage: 3.6 MILLIGRAM, QD (ONCE EVERY ONE DAY)
     Route: 058
     Dates: start: 20220825, end: 20220825
  3. ZOLADEX [Suspect]
     Active Substance: GOSERELIN ACETATE
     Indication: Breast cancer
     Dosage: UNK
     Route: 065
  4. PALBOCICLIB [Suspect]
     Active Substance: PALBOCICLIB
     Indication: Chemotherapy
     Dosage: 125 MILLIGRAM, QD (ONCE EVERY ONE DAY)
     Route: 048
     Dates: start: 20220825, end: 20220914
  5. EXEMESTANE [Suspect]
     Active Substance: EXEMESTANE
     Indication: Chemotherapy
     Dosage: 125 MILLIGRAM, QD (ONCE EVERY ONE DAY)
     Route: 048
     Dates: start: 20220825, end: 20220907

REACTIONS (2)
  - Granulocytopenia [Unknown]
  - Myelosuppression [Unknown]

NARRATIVE: CASE EVENT DATE: 20220919
